FAERS Safety Report 8986626 (Version 1)
Quarter: 2012Q4

REPORT INFORMATION
  Report Type: Spontaneous
  Country: US (occurrence: None)
  Receive Date: 20121219
  Receipt Date: 20121219
  Transmission Date: 20130627
  Serious: Yes (Other)
  Sender: FDA-Public Use
  Company Number: None

PATIENT
  Age: 45 Year
  Sex: Female
  Weight: 96.16 kg

DRUGS (1)
  1. CYMBALTA [Suspect]
     Indication: OSTEOARTHRITIS
     Dosage: one a day  7AM  po
     Route: 048
     Dates: start: 20120901, end: 20121212

REACTIONS (6)
  - Feeling abnormal [None]
  - Insomnia [None]
  - Bruxism [None]
  - Urticaria [None]
  - Scab [None]
  - Abdominal pain upper [None]
